FAERS Safety Report 23759238 (Version 1)
Quarter: 2024Q2

REPORT INFORMATION
  Report Type: Spontaneous
  Country: US (occurrence: None)
  Receive Date: 20240418
  Receipt Date: 20240418
  Transmission Date: 20240716
  Serious: No
  Sender: FDA-Public Use
  Company Number: US-ROCHE-3356802

PATIENT
  Sex: Male

DRUGS (3)
  1. ESBRIET [Suspect]
     Active Substance: PIRFENIDONE
     Indication: Cardiac assistance device user
     Route: 048
  2. ASPIRIN [Concomitant]
     Active Substance: ASPIRIN
  3. WELLBUTRIN [Concomitant]
     Active Substance: BUPROPION HYDROCHLORIDE

REACTIONS (2)
  - Nausea [Not Recovered/Not Resolved]
  - Off label use [Unknown]
